FAERS Safety Report 9897779 (Version 2)
Quarter: 2014Q1

REPORT INFORMATION
  Report Type: Spontaneous
  Country: JP (occurrence: JP)
  Receive Date: 20140214
  Receipt Date: 20140214
  Transmission Date: 20141002
  Serious: Yes (Hospitalization)
  Sender: FDA-Public Use
  Company Number: JP-NOVOPROD-395209

PATIENT
  Age: 34 Year
  Sex: Male
  Weight: 110 kg

DRUGS (2)
  1. VICTOZA HIKACHU INJECTION [Suspect]
     Indication: TYPE 2 DIABETES MELLITUS
     Dosage: 0.9 MG, QD
     Route: 058
     Dates: start: 20110620, end: 20131209
  2. LIVALO [Suspect]
     Indication: DYSLIPIDAEMIA
     Dosage: 1 MG, QD
     Dates: start: 20130809, end: 20131209

REACTIONS (1)
  - Rhabdomyolysis [Recovered/Resolved]
